FAERS Safety Report 7602131-1 (Version None)
Quarter: 2011Q3

REPORT INFORMATION
  Report Type: 
  Country: None (occurrence: None)
  Receive Date: 20110711
  Receipt Date: 20110706
  Transmission Date: 20111222
  Serious: Yes (Other)
  Sender: FDA-Public Use
  Company Number: PHHO2010DE01986

PATIENT
  Sex: Female
  Weight: 61.5 kg

DRUGS (4)
  1. AVONEX [Concomitant]
     Indication: MULTIPLE SCLEROSIS
  2. MODAFINIL [Concomitant]
     Indication: FATIGUE
  3. TAMSULOSIN HCL [Concomitant]
     Indication: BLADDER DYSFUNCTION
  4. FTY [Suspect]
     Indication: MULTIPLE SCLEROSIS
     Dosage: 0.5 MG, UNK
     Route: 048
     Dates: start: 20080801, end: 20100202

REACTIONS (2)
  - BASAL CELL CARCINOMA [None]
  - TELANGIECTASIA [None]
